FAERS Safety Report 12144224 (Version 2)
Quarter: 2016Q1

REPORT INFORMATION
  Report Type: Report from Study
  Country: JP (occurrence: JP)
  Receive Date: 20160304
  Receipt Date: 20160322
  Transmission Date: 20160526
  Serious: Yes (Death)
  Sender: FDA-Public Use
  Company Number: JP-ROCHE-1721397

PATIENT
  Sex: Male

DRUGS (1)
  1. RANIBIZUMAB [Suspect]
     Active Substance: RANIBIZUMAB
     Indication: RETINAL VEIN OCCLUSION
     Route: 050
     Dates: start: 20150529, end: 201511

REACTIONS (1)
  - Myocardial ischaemia [Fatal]

NARRATIVE: CASE EVENT DATE: 20160122
